FAERS Safety Report 5890317-6 (Version None)
Quarter: 2008Q3

REPORT INFORMATION
  Report Type: 
  Country: None (occurrence: None)
  Receive Date: 20080918
  Receipt Date: 20080902
  Transmission Date: 20090109
  Serious: Yes (Other)
  Sender: FDA-Public Use
  Company Number: TRP_05752_2008

PATIENT
  Sex: Female
  Weight: 129.3205 kg

DRUGS (3)
  1. RIBASPHERE [Suspect]
     Indication: HEPATITIS C VIRUS TEST
     Dosage: 1200 MG ORAL
     Route: 048
     Dates: start: 20070511
  2. PEGASYS [Suspect]
     Indication: HEPATITIS C VIRUS TEST
     Dosage: 180 MCG SUBCUTANEOUS
     Route: 058
     Dates: start: 20070511
  3. SYNTHROID [Concomitant]

REACTIONS (6)
  - BLOOD PRESSURE INCREASED [None]
  - HAEMORRHOIDS [None]
  - INJECTION SITE PAIN [None]
  - PRURITUS [None]
  - SKIN DEPIGMENTATION [None]
  - WEIGHT DECREASED [None]
